FAERS Safety Report 26130840 (Version 1)
Quarter: 2025Q4

REPORT INFORMATION
  Report Type: Spontaneous
  Country: US (occurrence: None)
  Receive Date: 20251207
  Receipt Date: 20251207
  Transmission Date: 20260118
  Serious: Yes (Other)
  Sender: FDA-CTU
  Company Number: None

PATIENT
  Age: 55 Year
  Sex: Female
  Weight: 74.25 kg

DRUGS (7)
  1. REPATHA [Suspect]
     Active Substance: EVOLOCUMAB
     Indication: Blood cholesterol increased
     Dosage: 1 INJECTION(S) ONCE EVERY 2 WEEKS SUBCUTQNEOUS
     Route: 058
     Dates: start: 20250523
  2. REPATHA [Suspect]
     Active Substance: EVOLOCUMAB
     Indication: Familial risk factor
  3. REPATHA [Suspect]
     Active Substance: EVOLOCUMAB
     Indication: Familial risk factor
  4. REPATHA [Concomitant]
     Active Substance: EVOLOCUMAB
  5. VITAMIN D3 [Concomitant]
     Active Substance: CHOLECALCIFEROL
  6. K7 [Concomitant]
  7. MAGNESIUM [Concomitant]
     Active Substance: MAGNESIUM

REACTIONS (4)
  - Erythema [None]
  - Injection site pruritus [None]
  - Alopecia [None]
  - Dry eye [None]

NARRATIVE: CASE EVENT DATE: 20251117
